FAERS Safety Report 5020985-2 (Version None)
Quarter: 2006Q2

REPORT INFORMATION
  Report Type: 
  Country: None (occurrence: None)
  Receive Date: 20060606
  Receipt Date: 20060606
  Transmission Date: 20061013
  Serious: Yes (Life-Threatening)
  Sender: FDA-Public Use
  Company Number: None

PATIENT
  Age: 50 Year
  Sex: Male
  Weight: 80.7403 kg

DRUGS (9)
  1. TEQUIN [Suspect]
     Indication: INFECTION PROPHYLAXIS
     Dosage: PO
     Route: 048
     Dates: start: 20051119, end: 20051128
  2. TOPROL XR [Concomitant]
  3. ALTACE [Concomitant]
  4. NEXIUM [Concomitant]
  5. ASPIRIN [Concomitant]
  6. ZOLOFT [Concomitant]
  7. LIPITOR [Concomitant]
  8. TRICOR [Concomitant]
  9. GLUCOPHAGE [Concomitant]

REACTIONS (1)
  - BLOOD GLUCOSE INCREASED [None]
